FAERS Safety Report 11102065 (Version 2)
Quarter: 2015Q3

REPORT INFORMATION
  Report Type: Report from Study
  Country: US (occurrence: US)
  Receive Date: 20150511
  Receipt Date: 20150905
  Transmission Date: 20151125
  Serious: Yes (Hospitalization)
  Sender: FDA-Public Use
  Company Number: US-ABBVIE-15K-163-1386513-00

PATIENT
  Age: 11 Year
  Sex: Female

DRUGS (2)
  1. HUMIRA [Suspect]
     Active Substance: ADALIMUMAB
     Route: 058
     Dates: start: 20150503
  2. HUMIRA [Suspect]
     Active Substance: ADALIMUMAB
     Indication: CROHN^S DISEASE
     Route: 058
     Dates: start: 20140131, end: 201407

REACTIONS (6)
  - Anxiety [Recovered/Resolved]
  - Anal abscess [Recovered/Resolved]
  - Drug administration error [Recovered/Resolved]
  - Injection site pain [Recovered/Resolved]
  - Intestinal fistula [Recovering/Resolving]
  - Fistula discharge [Recovering/Resolving]

NARRATIVE: CASE EVENT DATE: 20140131
